FAERS Safety Report 10983174 (Version 1)
Quarter: 2015Q1

REPORT INFORMATION
  Report Type: Spontaneous
  Country: IT (occurrence: None)
  Receive Date: 20150302
  Receipt Date: 20150302
  Transmission Date: 20150721
  Serious: Yes (Hospitalization)
  Sender: FDA-Public Use
  Company Number: 2014SYM00090

PATIENT
  Age: 84 Year
  Sex: Female

DRUGS (6)
  1. ACEON [Suspect]
     Active Substance: PERINDOPRIL ERBUMINE
     Indication: HYPERTENSION
     Route: 048
     Dates: start: 20140410, end: 20140619
  2. LERCADIP (LERCANIDIPINE HYDROCHLORIDE) [Concomitant]
  3. CARDIRENE (ACETYLSALLCYLATE LYSINE) [Suspect]
     Active Substance: ASPIRIN LYSINE
     Indication: PRODUCT USED FOR UNKNOWN INDICATION
  4. KADIUR (BUTIZIDE, POTASSUM CANRENOATE) 5/50MG [Suspect]
     Active Substance: BUTHIAZIDE\CANRENOATE POTASSIUM
     Indication: HEPATIC CIRRHOSIS
     Route: 048
     Dates: start: 20140603, end: 20140619
  5. APIDRA [Concomitant]
     Active Substance: INSULIN GLULISINE
  6. LANTUS [Concomitant]
     Active Substance: INSULIN GLARGINE

REACTIONS (3)
  - Hyperkalaemia [None]
  - Acute kidney injury [None]
  - Hyponatraemia [None]

NARRATIVE: CASE EVENT DATE: 20140619
